FAERS Safety Report 6266409-9 (Version None)
Quarter: 2009Q3

REPORT INFORMATION
  Report Type: 
  Country: None (occurrence: None)
  Receive Date: 20090713
  Receipt Date: 20090709
  Transmission Date: 20100115
  Serious: Yes (Death)
  Sender: FDA-Public Use
  Company Number: ZA-B.I. PHARMACEUTICALS,INC./RIDGEFIELD-2009-BP-08154BP

PATIENT
  Sex: Male
  Weight: 6.8 kg

DRUGS (4)
  1. BLIND (NEVIRAPINE) [Suspect]
     Indication: PROPHYLAXIS AGAINST HIV INFECTION
     Route: 048
     Dates: start: 20090216, end: 20090602
  2. COTRIM [Concomitant]
     Indication: PROPHYLAXIS
     Route: 002
     Dates: end: 20090602
  3. MULTI-VITAMIN [Concomitant]
  4. FERROUS [Concomitant]

REACTIONS (1)
  - DEATH [None]
